FAERS Safety Report 6837621-2 (Version None)
Quarter: 2010Q3

REPORT INFORMATION
  Report Type: 
  Country: None (occurrence: None)
  Receive Date: 20100709
  Receipt Date: 20100622
  Transmission Date: 20110219
  Serious: Yes (Hospitalization, Other)
  Sender: FDA-Public Use
  Company Number: 008-20794-10040865

PATIENT
  Age: 61 Year
  Sex: Female
  Weight: 69.9 kg

DRUGS (11)
  1. VIDAZA [Suspect]
     Indication: ACUTE MYELOID LEUKAEMIA
     Dosage: 129 MG, INJECTION
     Dates: start: 20100406, end: 20100408
  2. VIDAZA [Suspect]
     Indication: ACUTE MYELOID LEUKAEMIA
     Dosage: 129 MG, INJECTION
     Dates: start: 20100301
  3. VIDAZA [Suspect]
     Indication: ACUTE MYELOID LEUKAEMIA
     Dosage: 129 MG, INJECTION
     Dates: start: 20100412
  4. EVEROLIMUS (EVEROLIMUS (INJECTION) [Suspect]
     Indication: ACUTE MYELOID LEUKAEMIA
     Dosage: 2.5 MG
     Dates: start: 20100305
  5. EVEROLIMUS (EVEROLIMUS (INJECTION) [Suspect]
     Indication: ACUTE MYELOID LEUKAEMIA
     Dosage: 2.5 MG
     Dates: start: 20100409
  6. SOTALOL [Concomitant]
  7. PROPAX (OXAZEPAM) [Concomitant]
  8. MAXOLON [Concomitant]
  9. ONDANSETRON [Concomitant]
  10. CIPROXACILLIN [Concomitant]
  11. VORICONAZOLE [Concomitant]

REACTIONS (12)
  - BACTERAEMIA [None]
  - BLAST CELL COUNT DECREASED [None]
  - BLOOD BICARBONATE DECREASED [None]
  - FATIGUE [None]
  - FEBRILE NEUTROPENIA [None]
  - HAEMATOCRIT DECREASED [None]
  - HAEMOGLOBIN DECREASED [None]
  - LABORATORY TEST INTERFERENCE [None]
  - LYMPHOCYTE COUNT DECREASED [None]
  - STAPHYLOCOCCAL SEPSIS [None]
  - THROMBOCYTOPENIA [None]
  - WHITE BLOOD CELL COUNT DECREASED [None]
